FAERS Safety Report 8201591-5 (Version None)
Quarter: 2012Q1

REPORT INFORMATION
  Report Type: 
  Country: None (occurrence: None)
  Receive Date: 20120312
  Receipt Date: 20111206
  Transmission Date: 20120608
  Serious: Yes (Other)
  Sender: FDA-Public Use
  Company Number: TW-ROCHE-1023305

PATIENT

DRUGS (3)
  1. ALTEPLASE [Suspect]
     Indication: RETINAL HAEMORRHAGE
     Route: 050
  2. BETADINE [Concomitant]
  3. PERFLUTREN [Suspect]
     Indication: RETINAL HAEMORRHAGE
     Dosage: 0.1 ML

REACTIONS (1)
  - VITREOUS HAEMORRHAGE [None]
